FAERS Safety Report 6481526-6 (Version None)
Quarter: 2009Q4

REPORT INFORMATION
  Report Type: 
  Country: None (occurrence: None)
  Receive Date: 20091208
  Receipt Date: 20091203
  Transmission Date: 20100525
  Serious: Yes (Other)
  Sender: FDA-Public Use
  Company Number: PL-ROCHE-671957

PATIENT
  Sex: Female
  Weight: 65 kg

DRUGS (5)
  1. AVASTIN [Suspect]
     Indication: COLORECTAL CANCER
     Route: 042
     Dates: start: 20090408, end: 20091030
  2. MIRZATEN [Concomitant]
     Indication: ANTIDEPRESSANT THERAPY
  3. LERIVON [Concomitant]
     Indication: ANTIDEPRESSANT THERAPY
  4. BISOCARD [Concomitant]
     Indication: ANTIDEPRESSANT THERAPY
  5. CITAL [Concomitant]
     Indication: ANTIDEPRESSANT THERAPY

REACTIONS (2)
  - CEREBRAL ISCHAEMIA [None]
  - MENTAL DISORDER [None]
